FAERS Safety Report 8442797-X (Version None)
Quarter: 2012Q2

REPORT INFORMATION
  Report Type: 
  Country: None (occurrence: None)
  Receive Date: 20120615
  Receipt Date: 20120608
  Transmission Date: 20120825
  Serious: Yes (Hospitalization)
  Sender: FDA-Public Use
  Company Number: DE-ASTRAZENECA-2012SE39278

PATIENT
  Age: 2 Month
  Sex: Female

DRUGS (5)
  1. SYNAGIS [Suspect]
     Indication: ANTIVIRAL PROPHYLAXIS
     Route: 030
     Dates: start: 20120119, end: 20120119
  2. SYNAGIS [Suspect]
     Route: 030
     Dates: start: 20120217, end: 20120217
  3. SYNAGIS [Suspect]
     Route: 030
     Dates: start: 20120319, end: 20120319
  4. SPIRONOLACTONE [Concomitant]
     Dates: start: 20120118
  5. SYNAGIS [Suspect]
     Route: 030
     Dates: start: 20120416, end: 20120416

REACTIONS (2)
  - RESPIRATORY TRACT INFECTION [None]
  - BRONCHITIS [None]
